FAERS Safety Report 4736757-X (Version None)
Quarter: 2005Q3

REPORT INFORMATION
  Report Type: 
  Country: None (occurrence: None)
  Receive Date: 20050808
  Receipt Date: 20040720
  Transmission Date: 20060218
  Serious: Yes (Hospitalization)
  Sender: FDA-Public Use
  Company Number: US-MERCK-0407USA01742

PATIENT
  Age: 62 Year
  Sex: Male
  Weight: 100 kg

DRUGS (9)
  1. PREVACID [Concomitant]
     Route: 048
     Dates: start: 19990901
  2. VASOTEC RPD [Concomitant]
     Route: 065
  3. VIOXX [Suspect]
     Indication: ARTHRITIS
     Route: 048
     Dates: start: 19991106, end: 20000202
  4. VIOXX [Suspect]
     Route: 048
     Dates: start: 20000220
  5. HUMULIN N [Concomitant]
     Indication: DIABETES MELLITUS
     Route: 065
  6. HUMULIN R [Concomitant]
     Indication: DIABETES MELLITUS
     Route: 065
  7. NAPROXEN [Concomitant]
     Route: 048
     Dates: start: 19991106
  8. NAPROXEN [Concomitant]
     Route: 048
     Dates: start: 19991106
  9. LIVOSTIN [Concomitant]
     Route: 047
     Dates: start: 19991230

REACTIONS (20)
  - AMAUROSIS FUGAX [None]
  - ASTHENIA [None]
  - DYSPHAGIA [None]
  - DYSPNOEA EXERTIONAL [None]
  - EMOTIONAL DISTRESS [None]
  - GASTROOESOPHAGEAL REFLUX DISEASE [None]
  - HYPOAESTHESIA [None]
  - HYPOTENSION [None]
  - INSOMNIA [None]
  - ISCHAEMIC STROKE [None]
  - MUSCLE SPASMS [None]
  - NASOPHARYNGITIS [None]
  - NEPHROPATHY [None]
  - NEUROPATHY PERIPHERAL [None]
  - OEDEMA PERIPHERAL [None]
  - PAIN IN EXTREMITY [None]
  - POLLAKIURIA [None]
  - SPINAL COLUMN STENOSIS [None]
  - UPPER RESPIRATORY TRACT INFECTION [None]
  - VITREOUS HAEMORRHAGE [None]
